FAERS Safety Report 19693488 (Version 1)
Quarter: 2021Q3

REPORT INFORMATION
  Report Type: Report from Study
  Country: US (occurrence: US)
  Receive Date: 20210813
  Receipt Date: 20210813
  Transmission Date: 20211014
  Serious: No
  Sender: FDA-Public Use
  Company Number: US-ACADIA PHARMACEUTICALS INC.-ACA-2021-PIM-002690

PATIENT
  Sex: Female

DRUGS (14)
  1. MODAFINIL. [Concomitant]
     Active Substance: MODAFINIL
  2. AMITIZA [Concomitant]
     Active Substance: LUBIPROSTONE
  3. CARBIDOPA. [Concomitant]
     Active Substance: CARBIDOPA
  4. DOXEPIN HCL [Concomitant]
     Active Substance: DOXEPIN HYDROCHLORIDE
  5. NUPLAZID [Suspect]
     Active Substance: PIMAVANSERIN TARTRATE
     Indication: PARKINSON^S DISEASE
     Dosage: 10 MILLIGRAM, QD
     Route: 048
     Dates: start: 202106
  6. CHLORHEXIDINE GLUCONATE. [Concomitant]
     Active Substance: CHLORHEXIDINE GLUCONATE
  7. CARBIDOPA/LEVODOPA [Concomitant]
     Active Substance: CARBIDOPA\LEVODOPA
  8. AMANTADINE. [Concomitant]
     Active Substance: AMANTADINE HYDROCHLORIDE
  9. ZOLPIDEM TARTRATE. [Concomitant]
     Active Substance: ZOLPIDEM TARTRATE
  10. NUPLAZID [Suspect]
     Active Substance: PIMAVANSERIN TARTRATE
     Indication: PARKINSON^S DISEASE
     Dosage: 34 MILLIGRAM, QD
     Route: 048
  11. MIDODRINE HCL [Concomitant]
     Active Substance: MIDODRINE HYDROCHLORIDE
  12. INBRIJA [Concomitant]
     Active Substance: LEVODOPA
  13. PANTOPRAZOLE SODIUM. [Concomitant]
     Active Substance: PANTOPRAZOLE SODIUM
  14. MEGESTROL ACETATE. [Concomitant]
     Active Substance: MEGESTROL ACETATE

REACTIONS (9)
  - Underdose [Unknown]
  - Drug ineffective [Unknown]
  - Tremor [Unknown]
  - Speech disorder [Unknown]
  - Balance disorder [Unknown]
  - Decreased appetite [Unknown]
  - Dehydration [Unknown]
  - Delusion [Unknown]
  - Hallucination [Unknown]
